FAERS Safety Report 16572971 (Version 1)
Quarter: 2019Q3

REPORT INFORMATION
  Report Type: Spontaneous
  Country: US (occurrence: US)
  Receive Date: 20190715
  Receipt Date: 20190715
  Transmission Date: 20191004
  Serious: No
  Sender: FDA-Public Use
  Company Number: US-JUBILANT CADISTA PHARMACEUTICALS-2018JUB00361

PATIENT
  Sex: Male
  Weight: 83.9 kg

DRUGS (3)
  1. SEROQUEL [Concomitant]
     Active Substance: QUETIAPINE FUMARATE
  2. DONEPEZIL HYDROCHLORIDE. [Suspect]
     Active Substance: DONEPEZIL HYDROCHLORIDE
     Indication: MEMORY IMPAIRMENT
     Dosage: UNK, 1X/DAY
     Route: 048
     Dates: start: 20170125, end: 201706
  3. CLONAZEPAM. [Concomitant]
     Active Substance: CLONAZEPAM

REACTIONS (6)
  - Skin discolouration [Recovering/Resolving]
  - Faeces discoloured [Recovered/Resolved]
  - Sleep apnoea syndrome [Unknown]
  - Personality change [Unknown]
  - Haemorrhage [Unknown]
  - Rash [Recovering/Resolving]

NARRATIVE: CASE EVENT DATE: 2017
